FAERS Safety Report 4829823-1 (Version None)
Quarter: 2005Q4

REPORT INFORMATION
  Report Type: 
  Country: None (occurrence: None)
  Receive Date: 20051117
  Receipt Date: 20051114
  Transmission Date: 20060501
  Serious: Yes (Other)
  Sender: FDA-Public Use
  Company Number: JP-BOEHRINGER INGELHEIM PHARMACEUTICALS, INC.-2005-BP-20310YA

PATIENT
  Age: 69 Year
  Sex: Male

DRUGS (6)
  1. HARNAL [Suspect]
     Indication: BENIGN PROSTATIC HYPERPLASIA
     Route: 048
     Dates: start: 20050101, end: 20050916
  2. HARNAL [Suspect]
     Route: 048
     Dates: start: 20051022
  3. ALLOPURINOL [Concomitant]
  4. OXPRENOLOL [Concomitant]
  5. MAGNESIUM OXIDE [Concomitant]
  6. CLOSTRIDUM BUTYRICUM [Concomitant]

REACTIONS (2)
  - DEPRESSED LEVEL OF CONSCIOUSNESS [None]
  - FLUSHING [None]
